FAERS Safety Report 8470616-4 (Version None)
Quarter: 2012Q2

REPORT INFORMATION
  Report Type: 
  Country: None (occurrence: None)
  Receive Date: 20120627
  Receipt Date: 20120622
  Transmission Date: 20120825
  Serious: Yes (Disabling, Other)
  Sender: FDA-Public Use
  Company Number: PHHY2012CA008562

PATIENT
  Sex: Female

DRUGS (2)
  1. SANDOSTATIN LAR [Suspect]
     Indication: NEUROENDOCRINE TUMOUR
     Dosage: 20 MG, EVERY 4 WEEKS
     Route: 030
     Dates: start: 20101030
  2. SANDOSTATIN [Suspect]
     Dosage: 150 MG, UNK
     Route: 058

REACTIONS (10)
  - ERYTHEMA [None]
  - OEDEMA PERIPHERAL [None]
  - SCIATICA [None]
  - DIARRHOEA [None]
  - PANCREATIC DISORDER [None]
  - ABDOMINAL PAIN UPPER [None]
  - ABNORMAL FAECES [None]
  - STEATORRHOEA [None]
  - CELLULITIS [None]
  - PAIN IN EXTREMITY [None]
